FAERS Safety Report 22386817 (Version 1)
Quarter: 2023Q2

REPORT INFORMATION
  Report Type: Spontaneous
  Country: US (occurrence: US)
  Receive Date: 20230531
  Receipt Date: 20230531
  Transmission Date: 20230721
  Serious: Yes (Other)
  Sender: FDA-Public Use
  Company Number: US-LUPIN PHARMACEUTICALS INC.-2023-04082

PATIENT
  Age: 45 Year
  Sex: Female

DRUGS (6)
  1. GABAPENTIN [Suspect]
     Active Substance: GABAPENTIN
     Indication: Back pain
     Dosage: 1800 MG, QD (600MG IN THE MORNING AND 1200MG IN THE EVENING)
     Route: 065
     Dates: start: 2010
  2. BUPROPION [Suspect]
     Active Substance: BUPROPION
     Indication: Major depression
     Dosage: 100 MILLIGRAM, TID (3 TIMES A DAY)
     Route: 065
     Dates: start: 2008, end: 202010
  3. BUPROPION [Suspect]
     Active Substance: BUPROPION
     Indication: Nicotine dependence
     Dosage: 450 MILLIGRAM, QD (IN THE MORNING)
     Route: 065
     Dates: start: 202010
  4. BUPROPION [Suspect]
     Active Substance: BUPROPION
     Indication: Parasomnia
  5. HYDROCODONE [Suspect]
     Active Substance: HYDROCODONE
     Indication: Back pain
     Dosage: 10 MILLIGRAM, QID (4 TIMES A DAY)
     Route: 065
     Dates: start: 2002, end: 2016
  6. BUPRENORPHINE [Suspect]
     Active Substance: BUPRENORPHINE
     Indication: Back pain
     Dosage: 8 MG (2-2.5 PILLS A DAY)
     Route: 065

REACTIONS (4)
  - Restless legs syndrome [Unknown]
  - Symptom masked [Unknown]
  - Therapy non-responder [Unknown]
  - Off label use [Unknown]
